FAERS Safety Report 6457628-7 (Version None)
Quarter: 2009Q4

REPORT INFORMATION
  Report Type: 
  Country: None (occurrence: None)
  Receive Date: 20091024
  Receipt Date: 20091109
  Transmission Date: 20100525
  Serious: Yes (Hospitalization, Disabling, Other)
  Sender: FDA-Public Use
  Company Number: 2009AC000260

PATIENT
  Age: 30 Year
  Sex: Female

DRUGS (17)
  1. DIGOXIN [Suspect]
     Dates: start: 19990101
  2. K-DUR [Concomitant]
  3. LASIX [Concomitant]
  4. ASPIRIN [Concomitant]
  5. SPIRONOLACTONE [Concomitant]
  6. MIRTAZAPINE [Concomitant]
  7. VASOTEC [Concomitant]
  8. CATAPRES [Concomitant]
  9. TOROL XL [Concomitant]
  10. LOTENSIN [Concomitant]
  11. CELLCEPT [Concomitant]
  12. PROGRAF [Concomitant]
  13. PREDNISONE [Concomitant]
  14. SIMVASTATIN [Concomitant]
  15. LISINOPRIL [Concomitant]
  16. POTASSIUM [Concomitant]
  17. CLONAZEPAM [Concomitant]

REACTIONS (19)
  - ANAEMIA [None]
  - ANXIETY [None]
  - ASTHENIA [None]
  - CARDIAC FAILURE CONGESTIVE [None]
  - CARDIOMEGALY [None]
  - CARDIOMYOPATHY [None]
  - CHEST DISCOMFORT [None]
  - CHEST PAIN [None]
  - DIZZINESS [None]
  - ECONOMIC PROBLEM [None]
  - HEART TRANSPLANT [None]
  - HYPERTENSION [None]
  - MENORRHAGIA [None]
  - MULTIPLE INJURIES [None]
  - MUSCULAR WEAKNESS [None]
  - NAUSEA [None]
  - PANIC ATTACK [None]
  - TRANSIENT ISCHAEMIC ATTACK [None]
  - UNEVALUABLE EVENT [None]
